FAERS Safety Report 21723769 (Version 1)
Quarter: 2022Q4

REPORT INFORMATION
  Report Type: Spontaneous
  Country: US (occurrence: US)
  Receive Date: 20221213
  Receipt Date: 20221213
  Transmission Date: 20230113
  Serious: No
  Sender: FDA-Public Use
  Company Number: US-MYLANLABS-2022M1136527

PATIENT
  Sex: Female
  Weight: 68.04 kg

DRUGS (2)
  1. ESTRADIOL TRANSDERMAL SYSTEM [Suspect]
     Active Substance: ESTRADIOL
     Indication: Oophorectomy
     Dosage: 0.1 MILLIGRAM, QD (ONCE WEEKLY)
     Route: 062
     Dates: start: 20221114
  2. ESTRADIOL TRANSDERMAL SYSTEM [Suspect]
     Active Substance: ESTRADIOL
     Indication: Hysterectomy
     Dosage: 0.1 MILLIGRAM, QD (ONCE WEEKLY)
     Route: 062
     Dates: start: 20221114

REACTIONS (5)
  - Product adhesion issue [Unknown]
  - Product quality issue [Unknown]
  - Application site ulcer [Unknown]
  - Product residue present [Unknown]
  - Product dose omission issue [Unknown]
